FAERS Safety Report 8539309-9 (Version None)
Quarter: 2012Q3

REPORT INFORMATION
  Report Type: 
  Country: None (occurrence: None)
  Receive Date: 20120726
  Receipt Date: 20120315
  Transmission Date: 20120928
  Serious: No
  Sender: FDA-Public Use
  Company Number: US-ASTRAZENECA-2011SE43248

PATIENT
  Age: 13 Year
  Sex: Male

DRUGS (8)
  1. SINGULAIR [Concomitant]
  2. FOCALIN XR [Concomitant]
  3. NASONEX [Concomitant]
  4. SEROQUEL [Suspect]
     Route: 048
  5. SEROQUEL [Suspect]
     Route: 048
  6. SEROQUEL [Suspect]
     Route: 048
  7. FOCALIN XR [Concomitant]
  8. SEROQUEL [Suspect]
     Route: 048

REACTIONS (3)
  - DRUG INEFFECTIVE [None]
  - RESPIRATORY DISORDER [None]
  - DRUG DISPENSING ERROR [None]
